FAERS Safety Report 21273167 (Version 1)
Quarter: 2022Q3

REPORT INFORMATION
  Report Type: Spontaneous
  Country: CA (occurrence: CA)
  Receive Date: 20220831
  Receipt Date: 20220831
  Transmission Date: 20221027
  Serious: Yes (Other)
  Sender: FDA-Public Use
  Company Number: CA-PFIZER INC-PV202200052873

PATIENT
  Sex: Female

DRUGS (1)
  1. FRAGMIN [Suspect]
     Active Substance: DALTEPARIN SODIUM
     Dosage: 5000 IU

REACTIONS (2)
  - Abortion spontaneous [Unknown]
  - Off label use [Unknown]
